FAERS Safety Report 9367275 (Version 2)
Quarter: 2013Q3

REPORT INFORMATION
  Report Type: Spontaneous
  Country: US (occurrence: US)
  Receive Date: 20130625
  Receipt Date: 20130716
  Transmission Date: 20140515
  Serious: Yes (Hospitalization, Other)
  Sender: FDA-Public Use
  Company Number: US-FRI-1000046111

PATIENT
  Age: 85 Year
  Sex: Female
  Weight: 46.3 kg

DRUGS (10)
  1. CELEXA [Suspect]
  2. CITALOPRAM [Suspect]
  3. LISINOPRIL [Concomitant]
  4. ZANTAC [Concomitant]
  5. ARICEPT [Concomitant]
  6. WELLBUTRIN [Concomitant]
  7. PROTONIX [Concomitant]
  8. NAMENDA [Concomitant]
  9. HYDROCHLOROTHIAZIDE [Concomitant]
  10. TYLENOL [Concomitant]

REACTIONS (1)
  - Acquired haemophilia with anti FVIII, XI, or XIII [Recovered/Resolved]
